FAERS Safety Report 6657476-9 (Version None)
Quarter: 2010Q1

REPORT INFORMATION
  Report Type: 
  Country: None (occurrence: None)
  Receive Date: 20100330
  Receipt Date: 20100322
  Transmission Date: 20100710
  Serious: Yes (Death, Life-Threatening, Other)
  Sender: FDA-Public Use
  Company Number: PHHY2010DE17862

PATIENT
  Sex: Male
  Weight: 95 kg

DRUGS (12)
  1. EXFORGE [Suspect]
     Indication: HYPERTENSION
     Dosage: 1 DF/ DAY
     Route: 048
     Dates: start: 20081222, end: 20090730
  2. NO TREATMENT RECEIVED NOMED [Suspect]
     Indication: HYPERTENSION
     Dosage: 10MG/UNK MG, 1 DF PER DAY
     Route: 048
     Dates: start: 20081222, end: 20090730
  3. FUROSEMIDE [Concomitant]
     Dosage: 1000 MG PER DAY
     Route: 048
     Dates: start: 20060420, end: 20090730
  4. CLONIDINE [Concomitant]
     Dosage: 250 MG PER DAY
     Route: 048
     Dates: start: 20081027, end: 20090730
  5. MOXONIDINE [Concomitant]
     Dosage: 0.2 MG PER DAY
     Route: 048
     Dates: start: 20080331, end: 20090730
  6. LISINOPRIL [Concomitant]
     Dosage: 20 MG PER DAY
     Route: 048
     Dates: start: 20060125, end: 20090730
  7. OMEPRAZOLE [Concomitant]
     Dosage: 40 MG PER DAY
     Route: 048
     Dates: start: 20060125, end: 20090730
  8. BISOPROLOL [Concomitant]
     Dosage: 10 MG PER DAY
     Route: 048
     Dates: start: 20051212, end: 20090730
  9. INSULIN [Concomitant]
     Indication: DIABETES MELLITUS
  10. ACE INHIBITOR NOS [Concomitant]
     Dosage: UNK
     Dates: start: 20090324
  11. PLATELET AGGREGATION INHIBITORS [Concomitant]
  12. ANTIDEPRESSANTS [Concomitant]

REACTIONS (17)
  - BLOOD CREATININE INCREASED [None]
  - BLOOD PRESSURE INCREASED [None]
  - CARDIAC ARREST [None]
  - CARDIAC FAILURE [None]
  - CORONARY ARTERY DISEASE [None]
  - DEPRESSION [None]
  - DIABETES MELLITUS [None]
  - DIABETIC NEPHROPATHY [None]
  - DIABETIC NEUROPATHY [None]
  - DIABETIC RETINOPATHY [None]
  - DYSPNOEA [None]
  - ELECTROCARDIOGRAM QRS COMPLEX PROLONGED [None]
  - ELECTROCARDIOGRAM QT PROLONGED [None]
  - HYPERCHOLESTEROLAEMIA [None]
  - MICROALBUMINURIA [None]
  - PERIPHERAL ARTERIAL OCCLUSIVE DISEASE [None]
  - RENAL DISORDER [None]
